FAERS Safety Report 10442071 (Version 1)
Quarter: 2014Q3

REPORT INFORMATION
  Report Type: Spontaneous
  Country: IT (occurrence: IT)
  Receive Date: 20140909
  Receipt Date: 20140909
  Transmission Date: 20150326
  Serious: Yes (Other)
  Sender: FDA-Public Use
  Company Number: IT-TEVA-506133ISR

PATIENT
  Age: 57 Year
  Sex: Female
  Weight: 46 kg

DRUGS (4)
  1. ALKERAN [Suspect]
     Active Substance: MELPHALAN
     Indication: FOLLICLE CENTRE LYMPHOMA, FOLLICULAR GRADE I, II, III STAGE IV
     Dosage: 200 MG TOTAL. POWDER AND SOLVENT FOR SOLUTION FOR INJECTION
     Route: 042
     Dates: start: 20050206, end: 20050206
  2. ADRIBLASTINA [Suspect]
     Active Substance: DOXORUBICIN HYDROCHLORIDE
     Indication: FOLLICLE CENTRE LYMPHOMA, FOLLICULAR GRADE I, II, III STAGE IV
     Dosage: 75 MG CYCLICAL
     Route: 042
     Dates: start: 20040705, end: 20040816
  3. ETOPOSIDE. [Suspect]
     Active Substance: ETOPOSIDE
     Indication: FOLLICLE CENTRE LYMPHOMA, FOLLICULAR GRADE I, II, III STAGE IV
     Dosage: 288 MG CYCLICAL
     Route: 042
     Dates: start: 20050202, end: 20050205
  4. BICNU [Suspect]
     Active Substance: CARMUSTINE
     Indication: FOLLICLE CENTRE LYMPHOMA, FOLLICULAR GRADE I, II, III STAGE IV
     Dosage: 430 MG TOTAL. POWDER FOR SOLUTION FOR INJECTION
     Route: 041
     Dates: start: 20050201, end: 20050201

REACTIONS (3)
  - Thrombocytopenia [Not Recovered/Not Resolved]
  - Myelodysplastic syndrome [Not Recovered/Not Resolved]
  - Anaemia [Not Recovered/Not Resolved]

NARRATIVE: CASE EVENT DATE: 20131221
